FAERS Safety Report 7072479-0 (Version None)
Quarter: 2010Q4

REPORT INFORMATION
  Report Type: 
  Country: None (occurrence: None)
  Receive Date: 20101029
  Receipt Date: 20100129
  Transmission Date: 20110411
  Serious: No
  Sender: FDA-Public Use
  Company Number: A0842617A

PATIENT
  Age: 53 Year
  Sex: Female

DRUGS (2)
  1. ADVAIR DISKUS 100/50 [Suspect]
     Indication: ASTHMA
     Route: 055
     Dates: start: 20010101
  2. UNSPECIFIED INHALER [Concomitant]
     Indication: ASTHMA
     Route: 055

REACTIONS (3)
  - CHEST PAIN [None]
  - DYSPNOEA [None]
  - INSOMNIA [None]
